FAERS Safety Report 24937790 (Version 2)
Quarter: 2025Q2

REPORT INFORMATION
  Report Type: Spontaneous
  Country: US (occurrence: US)
  Receive Date: 20250206
  Receipt Date: 20250421
  Transmission Date: 20250716
  Serious: Yes (Hospitalization, Other)
  Sender: BRISTOL-MYERS SQUIBB COMPANY
  Company Number: US-BRISTOL-MYERS SQUIBB COMPANY-2025-015642

PATIENT
  Age: 75 Year
  Sex: Female
  Weight: 58.51 kg

DRUGS (1)
  1. POMALYST [Suspect]
     Active Substance: POMALIDOMIDE
     Indication: Plasma cell myeloma
     Dosage: DAILY ON DAYS 1-21 OF 28 DAYS CYCLE.
     Route: 048
     Dates: start: 20250312

REACTIONS (5)
  - Atypical pneumonia [Recovering/Resolving]
  - Cardiac infection [Recovering/Resolving]
  - Blood magnesium decreased [Recovering/Resolving]
  - Blood potassium decreased [Recovering/Resolving]
  - Laboratory test abnormal [Unknown]
